FAERS Safety Report 9153397 (Version 1)
Quarter: 2013Q1

REPORT INFORMATION
  Report Type: Spontaneous
  Country: US (occurrence: None)
  Receive Date: 20130304
  Receipt Date: 20130304
  Transmission Date: 20140127
  Serious: No
  Sender: FDA-Public Use
  Company Number: None

PATIENT
  Sex: Female

DRUGS (1)
  1. KLONOPIN [Suspect]
     Dosage: KLONOPIN 0.5MG 1 EVERY HOUR FOR 30 DAYS

REACTIONS (2)
  - Product substitution issue [None]
  - Insomnia [None]
